FAERS Safety Report 5323923-8 (Version None)
Quarter: 2007Q2

REPORT INFORMATION
  Report Type: 
  Country: None (occurrence: None)
  Receive Date: 20070509
  Receipt Date: 20070509
  Transmission Date: 20071010
  Serious: No
  Sender: FDA-Public Use
  Company Number: None

PATIENT
  Age: 51 Year
  Sex: Female
  Weight: 81.6475 kg

DRUGS (5)
  1. HYDROXYCHLOROQUINE SULFATE WATSON [Suspect]
     Indication: RHEUMATOID ARTHRITIS
     Dosage: 200MG BID
  2. FOLIC ACID [Concomitant]
  3. ETODOLAC [Concomitant]
  4. REMICADE [Concomitant]
  5. METHOTREXATE [Concomitant]

REACTIONS (3)
  - DYSGEUSIA [None]
  - HEADACHE [None]
  - PHARMACEUTICAL PRODUCT COMPLAINT [None]
